FAERS Safety Report 15073194 (Version 1)
Quarter: 2018Q2

REPORT INFORMATION
  Report Type: Report from Study
  Country: CN (occurrence: CN)
  Receive Date: 20180627
  Receipt Date: 20180627
  Transmission Date: 20180711
  Serious: Yes (Other)
  Sender: FDA-Public Use
  Company Number: CN-ROCHE-1627035

PATIENT
  Sex: Female
  Weight: 60 kg

DRUGS (1)
  1. AVASTIN [Suspect]
     Active Substance: BEVACIZUMAB
     Indication: GASTROINTESTINAL CARCINOMA
     Route: 041
     Dates: start: 20141016

REACTIONS (5)
  - Discomfort [Unknown]
  - Asthenia [Unknown]
  - Cerebral haemorrhage [Unknown]
  - Speech disorder [Unknown]
  - Hypertension [Unknown]
